FAERS Safety Report 5972713-1 (Version None)
Quarter: 2008Q4

REPORT INFORMATION
  Report Type: 
  Country: None (occurrence: None)
  Receive Date: 20081125
  Receipt Date: 20081114
  Transmission Date: 20090506
  Serious: Yes (Death, Hospitalization)
  Sender: FDA-Public Use
  Company Number: 2008PL000214

PATIENT
  Age: 90 Year

DRUGS (2)
  1. LABETALOL HYDROCHLORIDE [Suspect]
     Indication: BLOOD PRESSURE
  2. ACTIVASE [Concomitant]

REACTIONS (1)
  - CEREBRAL HAEMORRHAGE [None]
